FAERS Safety Report 5860002-5 (Version None)
Quarter: 2008Q3

REPORT INFORMATION
  Report Type: 
  Country: None (occurrence: None)
  Receive Date: 20080827
  Receipt Date: 20080819
  Transmission Date: 20090109
  Serious: Yes (Other)
  Sender: FDA-Public Use
  Company Number: US-ELI_LILLY_AND_COMPANY-US200808003837

PATIENT
  Sex: Female
  Weight: 116.55 kg

DRUGS (13)
  1. BYETTA [Suspect]
     Indication: TYPE 2 DIABETES MELLITUS
     Dosage: 5 UG, 2/D
     Route: 058
     Dates: start: 20050101, end: 20050101
  2. BYETTA [Suspect]
     Dosage: 10 UG, 2/D
     Route: 058
     Dates: start: 20050101
  3. HUMALOG [Concomitant]
     Indication: TYPE 2 DIABETES MELLITUS
  4. NEURONTIN [Concomitant]
     Indication: NEUROPATHY PERIPHERAL
  5. VITAMIN D [Concomitant]
     Dosage: UNK, WEEKLY (1/W)
  6. CALCIUM [Concomitant]
     Dosage: UNK, 2/D
  7. VITAMIN TAB [Concomitant]
     Dosage: UNK, DAILY (1/D)
  8. FUROSEMIDE [Concomitant]
     Indication: OEDEMA
  9. ANTIHYPERTENSIVES [Concomitant]
     Indication: HYPERTENSION
     Dosage: 10 MG, DAILY (1/D)
     Route: 048
  10. ASCORBIC ACID [Concomitant]
     Dosage: UNK, DAILY (1/D)
  11. SIMVASTATIN [Concomitant]
     Indication: PROPHYLAXIS
     Dosage: 10 MG, UNK
     Route: 048
  12. SYNTHROID [Concomitant]
     Indication: THYROID DISORDER
     Dates: start: 20040101
  13. ASPIRIN [Concomitant]

REACTIONS (2)
  - CATARACT [None]
  - GASTRIC CANCER [None]
